FAERS Safety Report 7076410-3 (Version None)
Quarter: 2010Q4

REPORT INFORMATION
  Report Type: 
  Country: None (occurrence: None)
  Receive Date: 20101021
  Receipt Date: 20101005
  Transmission Date: 20110411
  Serious: No
  Sender: FDA-Public Use
  Company Number: THQ2010A03038

PATIENT
  Age: 53 Year
  Sex: Female

DRUGS (2)
  1. ZACTOS (PIOGLITAZONE HYDROCHLORIDE) [Suspect]
     Indication: PRODUCT USED FOR UNKNOWN INDICATION
     Dosage: 15 MG
  2. INSULIN [Concomitant]

REACTIONS (1)
  - GASTRIC CANCER [None]
